FAERS Safety Report 17090666 (Version 1)
Quarter: 2019Q4

REPORT INFORMATION
  Report Type: Spontaneous
  Country: FR (occurrence: FR)
  Receive Date: 20191129
  Receipt Date: 20191129
  Transmission Date: 20200122
  Serious: Yes (Death)
  Sender: FDA-Public Use
  Company Number: FR-ROCHE-2477210

PATIENT
  Age: 69 Year
  Sex: Female
  Weight: 60 kg

DRUGS (4)
  1. ZOPHREN [ONDANSETRON] [Concomitant]
     Active Substance: ONDANSETRON
     Indication: PROPHYLAXIS OF NAUSEA AND VOMITING
     Route: 042
  2. KENZEN [CANDESARTAN CILEXETIL] [Concomitant]
     Active Substance: CANDESARTAN CILEXETIL
     Route: 048
     Dates: start: 2013
  3. KADCYLA [Suspect]
     Active Substance: ADO-TRASTUZUMAB EMTANSINE
     Indication: BREAST CANCER METASTATIC
     Route: 042
     Dates: start: 20191018, end: 20191018
  4. CARDENSIEL [Concomitant]
     Active Substance: BISOPROLOL FUMARATE
     Route: 048
     Dates: start: 2013

REACTIONS (1)
  - Cardiac arrest [Fatal]

NARRATIVE: CASE EVENT DATE: 20191018
